FAERS Safety Report 12869644 (Version 2)
Quarter: 2016Q4

REPORT INFORMATION
  Report Type: Report from Study
  Country: US (occurrence: US)
  Receive Date: 20161021
  Receipt Date: 20161116
  Transmission Date: 20170207
  Serious: Yes (Other)
  Sender: FDA-Public Use
  Company Number: US-ALEXION-A201607890

PATIENT
  Sex: Female

DRUGS (1)
  1. SOLIRIS [Suspect]
     Active Substance: ECULIZUMAB
     Indication: PAROXYSMAL NOCTURNAL HAEMOGLOBINURIA
     Dosage: UNK
     Route: 042

REACTIONS (11)
  - Blood calcium decreased [Unknown]
  - Retinal haemorrhage [Unknown]
  - Alopecia [Unknown]
  - Full blood count decreased [Unknown]
  - Fall [Unknown]
  - Diverticulitis [Unknown]
  - Abdominal distension [Unknown]
  - Decreased appetite [Unknown]
  - Pain [Unknown]
  - Gastrointestinal infection [Unknown]
  - Tooth loss [Unknown]
